FAERS Safety Report 17219454 (Version 1)
Quarter: 2019Q4

REPORT INFORMATION
  Report Type: Spontaneous
  Country: US (occurrence: US)
  Receive Date: 20191209
  Receipt Date: 20191209
  Transmission Date: 20200122
  Serious: No
  Sender: FDA-Public Use
  Company Number: None

PATIENT
  Age: 72 Year
  Sex: Male

DRUGS (1)
  1. TASIGNA [Suspect]
     Active Substance: NILOTINIB
     Route: 046
     Dates: start: 20191120, end: 20191125

REACTIONS (2)
  - Nausea [None]
  - Therapy cessation [None]

NARRATIVE: CASE EVENT DATE: 20191209
